FAERS Safety Report 7606648-5 (Version None)
Quarter: 2011Q3

REPORT INFORMATION
  Report Type: 
  Country: None (occurrence: None)
  Receive Date: 20110713
  Receipt Date: 20110629
  Transmission Date: 20111222
  Serious: Yes (Hospitalization)
  Sender: FDA-Public Use
  Company Number: JP-GENENTECH-317265

PATIENT
  Sex: Male

DRUGS (6)
  1. LUCENTIS [Suspect]
     Dosage: 0.05 ML, UNKNOWN
     Route: 031
     Dates: start: 20110411
  2. ACTOS [Concomitant]
     Indication: PRODUCT USED FOR UNKNOWN INDICATION
  3. LUCENTIS [Suspect]
     Dosage: 0.05 ML, UNKNOWN
     Route: 031
     Dates: start: 20110307
  4. LEVOFLOXACIN [Concomitant]
     Indication: PRODUCT USED FOR UNKNOWN INDICATION
     Dosage: UNK
     Dates: start: 20110201, end: 20110401
  5. LIPITOR [Concomitant]
     Indication: PRODUCT USED FOR UNKNOWN INDICATION
  6. LUCENTIS [Suspect]
     Indication: CONGENITAL MYOPIA
     Dosage: 0.05 ML, UNKNOWN
     Route: 031
     Dates: start: 20110210

REACTIONS (1)
  - PSEUDOENDOPHTHALMITIS [None]
